FAERS Safety Report 14181981 (Version 1)
Quarter: 2017Q4

REPORT INFORMATION
  Report Type: Spontaneous
  Country: US (occurrence: US)
  Receive Date: 20171113
  Receipt Date: 20171113
  Transmission Date: 20180321
  Serious: No
  Sender: FDA-Public Use
  Company Number: US-TEVA-794161ACC

PATIENT
  Sex: Female

DRUGS (1)
  1. ROSUVASTATIN. [Suspect]
     Active Substance: ROSUVASTATIN
     Indication: BLOOD CHOLESTEROL

REACTIONS (4)
  - Abdominal discomfort [Recovered/Resolved]
  - Palpitations [Unknown]
  - Dizziness [Recovered/Resolved]
  - Pain in extremity [Unknown]
